FAERS Safety Report 4601652-3 (Version None)
Quarter: 2005Q1

REPORT INFORMATION
  Report Type: 
  Country: None (occurrence: None)
  Receive Date: 20050308
  Receipt Date: 20050301
  Transmission Date: 20050727
  Serious: Yes (Other)
  Sender: FDA-Public Use
  Company Number: US-BRISTOL-MYERS SQUIBB COMPANY-12881686

PATIENT
  Age: 47 Year
  Sex: Female

DRUGS (14)
  1. GLUCOPHAGE [Suspect]
     Dates: start: 20040901
  2. FLUVOXAMINE MALEATE [Suspect]
     Indication: BIPOLAR DISORDER
  3. PROVIGIL [Suspect]
     Route: 048
     Dates: start: 20040901
  4. TRAZODONE HCL [Concomitant]
  5. LITHIUM [Concomitant]
  6. PANTOPRAZOLE [Concomitant]
  7. BUTALBITAL [Concomitant]
  8. HYDROXYCHLOROQUINE SULFATE [Concomitant]
  9. LEVOTHYROXINE [Concomitant]
  10. LIOTHYRONINE SODIUM [Concomitant]
  11. FEXOFENADINE + PSEUDOEPHEDRINE HCL [Concomitant]
  12. CALCITONIN-SALMON [Concomitant]
  13. ETHINYL ESTRADIOL + LEVONORGESTREL [Concomitant]
  14. SPIRONOLACTONE [Concomitant]

REACTIONS (2)
  - ALANINE AMINOTRANSFERASE INCREASED [None]
  - ASPARTATE AMINOTRANSFERASE INCREASED [None]
